FAERS Safety Report 23470954 (Version 1)
Quarter: 2024Q1

REPORT INFORMATION
  Report Type: Spontaneous
  Country: CA (occurrence: CA)
  Receive Date: 20240202
  Receipt Date: 20240202
  Transmission Date: 20240410
  Serious: Yes (Life-Threatening, Hospitalization, Other)
  Sender: FDA-Public Use
  Company Number: CA-FRESENIUS KABI-FK202203522

PATIENT
  Age: 5 Year
  Sex: Male
  Weight: 18 kg

DRUGS (18)
  1. MITOXANTRONE [Suspect]
     Active Substance: MITOXANTRONE HYDROCHLORIDE
     Indication: Acute lymphocytic leukaemia recurrent
     Dosage: FORM: SOLUTION INTRAVENOUS?ROA: INYRAVENOUS
  2. VINCRISTINE SULFATE [Suspect]
     Active Substance: VINCRISTINE SULFATE
     Indication: Acute lymphocytic leukaemia recurrent
     Dosage: ROA: INYRAVENOUS
  3. METHOTREXATE [Suspect]
     Active Substance: METHOTREXATE
     Indication: Acute lymphocytic leukaemia recurrent
     Dosage: FORM: TABLET?ROA: INTRATHECAL
  4. ACETAMINOPHEN [Concomitant]
     Active Substance: ACETAMINOPHEN
     Indication: Product used for unknown indication
     Dosage: ROA: UNKNOWN
  5. ALLOPURINOL [Concomitant]
     Active Substance: ALLOPURINOL
     Indication: Product used for unknown indication
     Dosage: ROA: UNKNOWN?FORM: TABLET
  6. DEXAMETHASONE [Concomitant]
     Active Substance: DEXAMETHASONE
     Indication: Product used for unknown indication
     Dosage: FORM: LIQUID INTRA-ARTICULAR?ROA: UNKNOWN
  7. FAMOTIDINE [Concomitant]
     Active Substance: FAMOTIDINE
     Indication: Product used for unknown indication
     Dosage: FORM: NOT SPECIFIED?ROA: UNKNOWN
  8. FUROSEMIDE [Concomitant]
     Active Substance: FUROSEMIDE
     Indication: Product used for unknown indication
     Dosage: FORM: TABLET?ROA: UNKNOWN
  9. MORPHINE [Concomitant]
     Active Substance: MORPHINE
     Indication: Product used for unknown indication
     Dosage: FORM: NOT SPECIFIED?ROA: UNKNOWN
  10. MYCAMINE [Concomitant]
     Active Substance: MICAFUNGIN SODIUM
     Indication: Product used for unknown indication
     Dosage: FORM: POWDER FOR SOLUTION INTRAVENOUS?ROA: UNKNOWN
  11. NIFEDIPINE [Concomitant]
     Active Substance: NIFEDIPINE
     Indication: Product used for unknown indication
     Dosage: FORM: CAPSULE?ROA: UNKNOWN
  12. ONDANSETRON [Concomitant]
     Active Substance: ONDANSETRON
     Indication: Product used for unknown indication
     Dosage: FORM: NOT SPECIFIED?ROA: UNKNOWN
  13. POLYETHYLENE GLYCOL 3350 [Concomitant]
     Active Substance: POLYETHYLENE GLYCOL 3350
     Indication: Product used for unknown indication
     Dosage: FORM: NOT SPECIFIED?ROA: UNKNOWN
  14. POTASSIUM [Concomitant]
     Active Substance: POTASSIUM
     Indication: Product used for unknown indication
     Dosage: FORM: SOLUTION INTRAVENOUS?ROA: UNKNOWN
  15. RANITIDINE [Concomitant]
     Active Substance: RANITIDINE
     Indication: Product used for unknown indication
     Dosage: FORM: TABLET?ROA: UNKNOWN
  16. SULFAMETHOXAZOLE\TRIMETHOPRIM [Concomitant]
     Active Substance: SULFAMETHOXAZOLE\TRIMETHOPRIM
     Indication: Product used for unknown indication
     Dosage: FORM: NOT SPECIFIED?ROA: UNKNOWN
  17. VANCOMYCIN [Concomitant]
     Active Substance: VANCOMYCIN
     Indication: Product used for unknown indication
     Dosage: FORM: NOT SPECIFIED?ROA: UNKNOWN
  18. ZINECARD [Concomitant]
     Active Substance: DEXRAZOXANE HYDROCHLORIDE
     Indication: Product used for unknown indication
     Dosage: FORM: POWDER FOR SOLUTION INTRAVENOUS?ROA: UNKNOWN

REACTIONS (1)
  - Aplastic anaemia [Recovered/Resolved]
